FAERS Safety Report 9857499 (Version 1)
Quarter: 2014Q1

REPORT INFORMATION
  Report Type: Spontaneous
  Country: JP (occurrence: JP)
  Receive Date: 20140131
  Receipt Date: 20140131
  Transmission Date: 20141002
  Serious: Yes (Hospitalization, Other)
  Sender: FDA-Public Use
  Company Number: PHHY2014JP008194

PATIENT
  Age: 75 Year
  Sex: Male

DRUGS (4)
  1. RIFAMPICIN SANDOZ [Suspect]
     Indication: TUBERCULOUS PLEURISY
     Route: 048
     Dates: start: 20121221, end: 20130621
  2. ISONIAZID [Interacting]
     Indication: TUBERCULOUS PLEURISY
     Dates: start: 20121221, end: 20130621
  3. ETHAMBUTOL HYDROCHLORIDE [Interacting]
     Indication: TUBERCULOUS PLEURISY
     Route: 048
     Dates: start: 20121221, end: 20130621
  4. PYRAZINAMIDE [Interacting]
     Indication: TUBERCULOUS PLEURISY
     Dates: start: 20121221, end: 20130621

REACTIONS (2)
  - Diabetes mellitus inadequate control [Recovering/Resolving]
  - Drug interaction [Recovering/Resolving]
